FAERS Safety Report 18096260 (Version 2)
Quarter: 2020Q4

REPORT INFORMATION
  Report Type: Spontaneous
  Country: US (occurrence: US)
  Receive Date: 20200731
  Receipt Date: 20201119
  Transmission Date: 20210113
  Serious: Yes (Hospitalization, Other)
  Sender: FDA-Public Use
  Company Number: US-ABBVIE-20K-163-3452157-00

PATIENT
  Age: 56 Year
  Sex: Female

DRUGS (1)
  1. HUMIRA [Suspect]
     Active Substance: ADALIMUMAB
     Indication: CROHN^S DISEASE
     Route: 058
     Dates: start: 2020

REACTIONS (9)
  - Device intolerance [Unknown]
  - Gastric disorder [Unknown]
  - Gastrointestinal tube insertion [Unknown]
  - Injury associated with device [Unknown]
  - Incorrect dose administered [Unknown]
  - Constipation [Unknown]
  - Loss of consciousness [Unknown]
  - Wrong technique in product usage process [Unknown]
  - Gastrointestinal obstruction [Unknown]

NARRATIVE: CASE EVENT DATE: 2020
